FAERS Safety Report 7119086-9 (Version None)
Quarter: 2010Q4

REPORT INFORMATION
  Report Type: 
  Country: None (occurrence: None)
  Receive Date: 20101123
  Receipt Date: 20101118
  Transmission Date: 20110411
  Serious: Yes (Hospitalization)
  Sender: FDA-Public Use
  Company Number: B0685078A

PATIENT
  Sex: Male

DRUGS (14)
  1. AUGMENTIN '125' [Suspect]
     Indication: SPUTUM PURULENT
     Route: 048
     Dates: start: 20101026, end: 20101103
  2. AMIODARONE HCL [Concomitant]
     Route: 048
  3. CARDENSIEL [Concomitant]
     Dosage: 1.25MG IN THE MORNING
     Route: 048
  4. CORVASAL [Concomitant]
     Dosage: 4MG THREE TIMES PER DAY
     Route: 048
  5. DEBRIDAT [Concomitant]
     Dosage: 100MG THREE TIMES PER DAY
     Route: 048
  6. LASIX [Concomitant]
     Dosage: 60MG PER DAY
     Route: 048
  7. ZOPICLONE [Concomitant]
     Dosage: 7.5MG AT NIGHT
     Route: 048
  8. AMLOR [Concomitant]
     Dosage: 10MG IN THE MORNING
     Route: 048
  9. DIFFU K [Concomitant]
     Dosage: 600MG IN THE MORNING
     Route: 048
  10. IMPORTAL [Concomitant]
     Dosage: 1UNIT IN THE MORNING
     Route: 048
  11. LEVOTHYROXINE SODIUM [Concomitant]
     Dosage: 25MCG IN THE MORNING
     Route: 048
  12. MOPRAL [Concomitant]
     Dosage: 20MG AT NIGHT
     Route: 048
  13. SOLUPRED [Concomitant]
     Dosage: 60MG PER DAY
     Route: 048
  14. VENTOLIN [Concomitant]
     Dosage: 2PUFF THREE TIMES PER DAY
     Route: 055

REACTIONS (6)
  - DYSPNOEA [None]
  - FACE OEDEMA [None]
  - HYPERSENSITIVITY [None]
  - LIP SWELLING [None]
  - OROPHARYNGEAL DISCOMFORT [None]
  - RENAL FAILURE CHRONIC [None]
